FAERS Safety Report 20529247 (Version 1)
Quarter: 2022Q1

REPORT INFORMATION
  Report Type: Report from Study
  Country: FR (occurrence: FR)
  Receive Date: 20220228
  Receipt Date: 20220228
  Transmission Date: 20220423
  Serious: Yes (Hospitalization, Other)
  Sender: FDA-Public Use
  Company Number: FR-TAKEDA-2022TUS012647

PATIENT
  Age: 31 Year
  Sex: Male

DRUGS (16)
  1. TEDUGLUTIDE [Suspect]
     Active Substance: TEDUGLUTIDE
     Indication: Short-bowel syndrome
     Dosage: 2.38 MILLIGRAM, QD
     Route: 065
     Dates: start: 20160516, end: 20160607
  2. TEDUGLUTIDE [Suspect]
     Active Substance: TEDUGLUTIDE
     Indication: Short-bowel syndrome
     Dosage: 2.38 MILLIGRAM, QD
     Route: 065
     Dates: start: 20160516, end: 20160607
  3. TEDUGLUTIDE [Suspect]
     Active Substance: TEDUGLUTIDE
     Indication: Short-bowel syndrome
     Dosage: 2.38 MILLIGRAM, QD
     Route: 065
     Dates: start: 20160516, end: 20160607
  4. TEDUGLUTIDE [Suspect]
     Active Substance: TEDUGLUTIDE
     Indication: Short-bowel syndrome
     Dosage: 2.38 MILLIGRAM, QD
     Route: 065
     Dates: start: 20160516, end: 20160607
  5. TEDUGLUTIDE [Suspect]
     Active Substance: TEDUGLUTIDE
     Dosage: 1.13 MILLIGRAM, QD
     Route: 065
     Dates: start: 20160627, end: 20160909
  6. TEDUGLUTIDE [Suspect]
     Active Substance: TEDUGLUTIDE
     Dosage: 1.13 MILLIGRAM, QD
     Route: 065
     Dates: start: 20160627, end: 20160909
  7. TEDUGLUTIDE [Suspect]
     Active Substance: TEDUGLUTIDE
     Dosage: 1.13 MILLIGRAM, QD
     Route: 065
     Dates: start: 20160627, end: 20160909
  8. TEDUGLUTIDE [Suspect]
     Active Substance: TEDUGLUTIDE
     Dosage: 1.13 MILLIGRAM, QD
     Route: 065
     Dates: start: 20160627, end: 20160909
  9. TEDUGLUTIDE [Suspect]
     Active Substance: TEDUGLUTIDE
     Dosage: 1.33 MILLIGRAM, QD
     Route: 065
     Dates: start: 20191118, end: 20191201
  10. TEDUGLUTIDE [Suspect]
     Active Substance: TEDUGLUTIDE
     Dosage: 1.33 MILLIGRAM, QD
     Route: 065
     Dates: start: 20191118, end: 20191201
  11. TEDUGLUTIDE [Suspect]
     Active Substance: TEDUGLUTIDE
     Dosage: 1.33 MILLIGRAM, QD
     Route: 065
     Dates: start: 20191118, end: 20191201
  12. TEDUGLUTIDE [Suspect]
     Active Substance: TEDUGLUTIDE
     Dosage: 1.33 MILLIGRAM, QD
     Route: 065
     Dates: start: 20191118, end: 20191201
  13. LACTOBACILLUS ACIDOPHILUS [Concomitant]
     Active Substance: LACTOBACILLUS ACIDOPHILUS
     Indication: Prophylaxis
     Dosage: 340 MILLIGRAM, TID
     Route: 048
     Dates: start: 20180223, end: 20180225
  14. CLAVULANIC ACID [Concomitant]
     Active Substance: CLAVULANIC ACID
     Indication: Prophylaxis
     Dosage: 1 GRAM, TID
     Route: 048
     Dates: start: 20180223, end: 20180225
  15. ESOMEPRAZOLE [Concomitant]
     Active Substance: ESOMEPRAZOLE
     Indication: Prophylaxis
     Dosage: 40 MILLIGRAM, BID
     Route: 048
     Dates: start: 20180223, end: 20180420
  16. Meteospasmyl [Concomitant]
     Indication: Nausea
     Dosage: 999 UNK, TID
     Route: 048
     Dates: start: 20160718

REACTIONS (1)
  - Pyelonephritis [Not Recovered/Not Resolved]

NARRATIVE: CASE EVENT DATE: 20220101
